FAERS Safety Report 4993335-5 (Version None)
Quarter: 2006Q2

REPORT INFORMATION
  Report Type: 
  Country: None (occurrence: None)
  Receive Date: 20060505
  Receipt Date: 20060427
  Transmission Date: 20061013
  Serious: Yes (Other)
  Sender: FDA-Public Use
  Company Number: 2006UW07567

PATIENT
  Age: 18 Year
  Sex: Male
  Weight: 77.1 kg

DRUGS (5)
  1. SEROQUEL [Suspect]
     Indication: BIPOLAR DISORDER
     Route: 048
     Dates: start: 20050101
  2. ZYPREXA [Concomitant]
     Route: 048
  3. WELLBUTRIN [Concomitant]
     Route: 048
  4. LITHIUM [Concomitant]
     Route: 048
  5. DEPAKOTE [Concomitant]
     Route: 048

REACTIONS (5)
  - CONDITION AGGRAVATED [None]
  - HAEMATEMESIS [None]
  - HAEMATOCHEZIA [None]
  - PHARYNGEAL HAEMORRHAGE [None]
  - VOMITING [None]
